FAERS Safety Report 7433265-2 (Version None)
Quarter: 2011Q2

REPORT INFORMATION
  Report Type: 
  Country: None (occurrence: None)
  Receive Date: 20110422
  Receipt Date: 20110420
  Transmission Date: 20111010
  Serious: Yes (Death, Other)
  Sender: FDA-Public Use
  Company Number: TW-PFIZER INC-2011080655

PATIENT
  Age: 80 Year
  Sex: Male

DRUGS (9)
  1. CEFAZOLIN [Concomitant]
     Dosage: UNK
     Dates: start: 20110327
  2. TAZOCIN [Suspect]
     Dosage: 2.25 G, 3X/DAY
     Route: 042
     Dates: start: 20110324, end: 20110327
  3. SULBACTAM [Concomitant]
     Dosage: 500 MG, Q8H
     Dates: start: 20110311, end: 20110318
  4. CIPROFLOXACIN [Concomitant]
     Dosage: UNK
     Dates: start: 20110328, end: 20110404
  5. ALLOPURINOL [Concomitant]
     Dosage: UNK
     Dates: start: 20110321, end: 20110324
  6. PIPERACILLIN [Suspect]
     Dosage: 2 G, Q8H
     Route: 042
     Dates: start: 20110310, end: 20110324
  7. COLCHICINE [Concomitant]
     Indication: GOUT
     Dosage: UNK
     Dates: start: 20110319, end: 20110321
  8. ANIDULAFUNGIN [Concomitant]
     Dosage: 100 MG, 1X/DAY
     Route: 042
     Dates: start: 20110409
  9. GENTAMICIN [Concomitant]
     Dosage: UNK
     Dates: start: 20110327

REACTIONS (3)
  - FUNGAEMIA [None]
  - SEPTIC SHOCK [None]
  - DRUG ERUPTION [None]
